FAERS Safety Report 17767164 (Version 2)
Quarter: 2020Q2

REPORT INFORMATION
  Report Type: Spontaneous
  Country: CN (occurrence: CN)
  Receive Date: 20200511
  Receipt Date: 20200513
  Transmission Date: 20200714
  Serious: Yes (Other)
  Sender: FDA-Public Use
  Company Number: CN-PFIZER INC-2020185044

PATIENT
  Age: 62 Year
  Sex: Female
  Weight: 51 kg

DRUGS (1)
  1. SOLU-MEDROL [Suspect]
     Active Substance: METHYLPREDNISOLONE SODIUM SUCCINATE
     Indication: INFLAMMATION
     Dosage: 40 MG, 2X/DAY
     Route: 041
     Dates: start: 20200327, end: 20200329

REACTIONS (4)
  - Pruritus [Recovering/Resolving]
  - Lip swelling [Recovering/Resolving]
  - Rash [Recovering/Resolving]
  - Lip erythema [Recovering/Resolving]

NARRATIVE: CASE EVENT DATE: 20200329
